FAERS Safety Report 6443888-5 (Version None)
Quarter: 2009Q4

REPORT INFORMATION
  Report Type: 
  Country: None (occurrence: None)
  Receive Date: 20091113
  Receipt Date: 20091030
  Transmission Date: 20100525
  Serious: Yes (Hospitalization)
  Sender: FDA-Public Use
  Company Number: 08-000901

PATIENT
  Age: 44 Year
  Sex: Female

DRUGS (6)
  1. TACLONEX [Suspect]
     Indication: PSORIASIS
     Dosage: QD, TOPICAL
     Route: 061
     Dates: end: 20080331
  2. TACLONEX [Suspect]
     Indication: PSORIASIS
     Dosage: QD, TOPICAL
     Route: 061
     Dates: start: 20080411
  3. ADALIMUMAB (ADALIMUMAB) [Suspect]
     Indication: PSORIASIS
     Dosage: 40 MG BIW, TOPICAL; 40 MG BIW, TOPICAL
     Route: 061
     Dates: start: 20080303, end: 20080303
  4. ADALIMUMAB (ADALIMUMAB) [Suspect]
     Indication: PSORIASIS
     Dosage: 40 MG BIW, TOPICAL; 40 MG BIW, TOPICAL
     Route: 061
     Dates: start: 20080303
  5. CLINDAMYCIN HCL [Concomitant]
  6. AMOXICILLIN [Concomitant]

REACTIONS (5)
  - ACUTE GENERALISED EXANTHEMATOUS PUSTULOSIS [None]
  - CHILLS [None]
  - ERYSIPELAS [None]
  - HYPOTENSION [None]
  - PUSTULAR PSORIASIS [None]
